FAERS Safety Report 4803684-9 (Version None)
Quarter: 2005Q4

REPORT INFORMATION
  Report Type: 
  Country: None (occurrence: None)
  Receive Date: 20051017
  Receipt Date: 20050818
  Transmission Date: 20060501
  Serious: Yes (Other)
  Sender: FDA-Public Use
  Company Number: HQWYE023119AUG05

PATIENT
  Age: 87 Year
  Sex: Female
  Weight: 56.75 kg

DRUGS (5)
  1. ALAVERT [Suspect]
     Indication: LACRIMATION INCREASED
     Dosage: 1 TABLET 1X PER 1 DAY, ORAL
     Route: 048
     Dates: start: 20050801, end: 20050817
  2. ALAVERT [Suspect]
     Indication: SNEEZING
     Dosage: 1 TABLET 1X PER 1 DAY, ORAL
     Route: 048
     Dates: start: 20050801, end: 20050817
  3. NORVASC [Concomitant]
  4. MAXZIDE [Concomitant]
  5. COMBIVENT [Concomitant]

REACTIONS (2)
  - GINGIVAL PAIN [None]
  - TOOTHACHE [None]
